FAERS Safety Report 22995424 (Version 3)
Quarter: 2023Q4

REPORT INFORMATION
  Report Type: Spontaneous
  Country: JP (occurrence: JP)
  Receive Date: 20230927
  Receipt Date: 20231221
  Transmission Date: 20240110
  Serious: Yes (Life-Threatening)
  Sender: FDA-Public Use
  Company Number: JP-Merck Healthcare KGaA-2023475325

PATIENT
  Age: 64 Year
  Sex: Male
  Weight: 51 kg

DRUGS (9)
  1. ERBITUX [Suspect]
     Active Substance: CETUXIMAB
     Indication: Hypopharyngeal cancer
     Dosage: 650 MG, UNKNOWN
     Route: 041
     Dates: start: 20230913
  2. ERBITUX [Suspect]
     Active Substance: CETUXIMAB
     Dosage: UNK UNK, UNKNOWN
     Route: 041
  3. PACLITAXEL [Concomitant]
     Active Substance: PACLITAXEL
     Indication: Hypopharyngeal cancer
  4. DEXAMETHASONE SODIUM PHOSPHATE [Concomitant]
     Active Substance: DEXAMETHASONE PHOSPHATE\DEXAMETHASONE SODIUM PHOSPHATE
     Indication: Product used for unknown indication
     Dosage: 6.6 MG, UNKNOWN
     Route: 041
     Dates: start: 20230913
  5. DEXAMETHASONE SODIUM PHOSPHATE [Concomitant]
     Active Substance: DEXAMETHASONE PHOSPHATE\DEXAMETHASONE SODIUM PHOSPHATE
     Dosage: 3.3 MG, UNKNOWN
     Route: 041
     Dates: start: 20230913
  6. FAMOTIDINE [Concomitant]
     Active Substance: FAMOTIDINE
     Indication: Product used for unknown indication
     Dosage: 20 MG, UNKNOWN
     Route: 041
     Dates: start: 20230913
  7. FENTANYL CITRATE [Concomitant]
     Active Substance: FENTANYL CITRATE
     Indication: Product used for unknown indication
     Dosage: 2 MG, DAILY
     Route: 062
  8. OXINORM [ASCORBIC ACID;BETACAROTENE;COPPER;GL [Concomitant]
     Indication: Product used for unknown indication
     Dosage: UNK UNK, UNKNOWN
     Route: 048
  9. POLARAMINE [Concomitant]
     Active Substance: DEXCHLORPHENIRAMINE MALEATE
     Indication: Product used for unknown indication
     Dosage: UNK UNK, UNKNOWN
     Route: 041
     Dates: start: 20230913

REACTIONS (1)
  - Portal venous gas [Recovering/Resolving]

NARRATIVE: CASE EVENT DATE: 20230913
